FAERS Safety Report 9760448 (Version 1)
Quarter: 2013Q4

REPORT INFORMATION
  Report Type: Spontaneous
  Country: US (occurrence: US)
  Receive Date: 20131216
  Receipt Date: 20131216
  Transmission Date: 20140711
  Serious: No
  Sender: FDA-Public Use
  Company Number: US-PFIZER INC-2013358292

PATIENT
  Age: 48 Year
  Sex: Female
  Weight: 100 kg

DRUGS (8)
  1. LYRICA [Suspect]
     Indication: FIBROMYALGIA
     Dosage: 75 MG, 2X/DAY
     Route: 048
     Dates: start: 2006
  2. LYRICA [Interacting]
     Indication: NEURALGIA
     Dosage: 75 MG, 2X/DAY
     Route: 048
     Dates: start: 201311
  3. GLIPIZIDE [Interacting]
     Indication: DIABETES MELLITUS
     Dosage: 2.5 MG, DAILY
  4. HYDROCHLOROTHIAZIDE/SPIRONOLACTONE [Interacting]
     Indication: HYPERTENSION
     Dosage: 320 MG OF  SPIRONOLACTONE/25 MG OF HYDROCHLOROTHIAZIDE, 1X/DAY
  5. CYMBALTA [Suspect]
     Indication: FIBROMYALGIA
     Dosage: 60 MG, DAILY
  6. CYMBALTA [Suspect]
     Indication: NEURALGIA
  7. DIOVAN (VALSARTAN) [Interacting]
     Indication: HYPERTENSION
     Dosage: UNK
  8. SINGULAIR [Concomitant]
     Indication: ASTHMA
     Dosage: 10 MG, 1X/DAY

REACTIONS (3)
  - Drug interaction [Unknown]
  - Weight increased [Unknown]
  - Drug ineffective [Unknown]
